FAERS Safety Report 9362109 (Version 1)
Quarter: 2013Q2

REPORT INFORMATION
  Report Type: Spontaneous
  Country: CA (occurrence: CA)
  Receive Date: 20130621
  Receipt Date: 20130621
  Transmission Date: 20140414
  Serious: Yes (Hospitalization)
  Sender: FDA-Public Use
  Company Number: CA-BAXTER-2013BAX017076

PATIENT
  Age: 78 Year
  Sex: Female

DRUGS (3)
  1. DIANEAL PD4 SOLUTION WITH 2.5% DEXTROSE AND 2.5 MEQ/L CALCIUM [Suspect]
     Indication: RENAL FAILURE
     Route: 033
  2. DIANEAL PD4 SOLUTION WITH 4.25% DEXTROSE AND 2.5 MEQ/L CALCIUM [Suspect]
     Indication: RENAL FAILURE
     Route: 033
     Dates: start: 201305
  3. EXTRANEAL [Suspect]
     Indication: RENAL FAILURE
     Route: 033

REACTIONS (6)
  - Localised infection [Recovering/Resolving]
  - Vascular occlusion [Recovering/Resolving]
  - Varicose vein [Recovering/Resolving]
  - Dizziness [Recovered/Resolved]
  - Limb injury [Recovering/Resolving]
  - Fluid retention [Recovered/Resolved]
